FAERS Safety Report 18606073 (Version 1)
Quarter: 2020Q4

REPORT INFORMATION
  Report Type: Spontaneous
  Country: AU (occurrence: AU)
  Receive Date: 20201211
  Receipt Date: 20201211
  Transmission Date: 20210114
  Serious: Yes (Other)
  Sender: FDA-Public Use
  Company Number: AU-ASTRAZENECA-2020SF62502

PATIENT
  Age: 71 Year
  Sex: Male

DRUGS (2)
  1. TAGRISSO [Suspect]
     Active Substance: OSIMERTINIB
     Dosage: 80.0MG UNKNOWN
     Route: 048
  2. IRESSA [Suspect]
     Active Substance: GEFITINIB
     Route: 048

REACTIONS (4)
  - Metastases to liver [Unknown]
  - Disease progression [Unknown]
  - Metastases to bone [Unknown]
  - Metastases to meninges [Unknown]
